FAERS Safety Report 4647622-0 (Version None)
Quarter: 2005Q2

REPORT INFORMATION
  Report Type: 
  Country: None (occurrence: None)
  Receive Date: 20050428
  Receipt Date: 20050422
  Transmission Date: 20051028
  Serious: Yes (Hospitalization)
  Sender: FDA-Public Use
  Company Number: PHBS2005BR05863

PATIENT
  Age: 72 Year
  Sex: Male
  Weight: 95 kg

DRUGS (1)
  1. DIOVAN [Suspect]
     Dosage: 160 MG/DAY
     Route: 048
     Dates: start: 20041101, end: 20050301

REACTIONS (6)
  - CEREBRAL ISCHAEMIA [None]
  - DIZZINESS [None]
  - FEELING ABNORMAL [None]
  - HYPERHIDROSIS [None]
  - HYPERTENSION [None]
  - VOMITING [None]
